FAERS Safety Report 4462927-4 (Version None)
Quarter: 2004Q3

REPORT INFORMATION
  Report Type: 
  Country: None (occurrence: None)
  Receive Date: 20040927
  Receipt Date: 20040910
  Transmission Date: 20050211
  Serious: Yes (Hospitalization)
  Sender: FDA-Public Use
  Company Number: 8007265

PATIENT
  Age: 44 Year
  Sex: Female

DRUGS (5)
  1. KEPPRA [Suspect]
     Indication: EPILEPSY
     Dosage: 1000 MG 1/D PO
     Route: 048
     Dates: start: 20040416, end: 20040422
  2. ELTROXIN ^GLAXO^ [Concomitant]
  3. VALIUM [Concomitant]
  4. VALIUM [Concomitant]
  5. FRAGMIN P [Concomitant]

REACTIONS (7)
  - C-REACTIVE PROTEIN INCREASED [None]
  - CONSTIPATION [None]
  - HYPERSENSITIVITY [None]
  - LYMPHOCYTE MORPHOLOGY ABNORMAL [None]
  - PYREXIA [None]
  - RASH MACULO-PAPULAR [None]
  - SHIFT TO THE LEFT [None]
